FAERS Safety Report 20770771 (Version 3)
Quarter: 2022Q2

REPORT INFORMATION
  Report Type: Spontaneous
  Country: ES (occurrence: ES)
  Receive Date: 20220429
  Receipt Date: 20220529
  Transmission Date: 20220721
  Serious: No
  Sender: FDA-Public Use
  Company Number: ES-UCBSA-2022023787

PATIENT
  Sex: Female

DRUGS (1)
  1. NEUPRO [Suspect]
     Active Substance: ROTIGOTINE
     Indication: Restless legs syndrome
     Dosage: 4 MILLIGRAM, ONCE DAILY (QD)
     Route: 062

REACTIONS (4)
  - Restless legs syndrome [Recovered/Resolved]
  - Therapeutic product ineffective [Unknown]
  - Product adhesion issue [Unknown]
  - Overdose [Unknown]
